FAERS Safety Report 10581056 (Version 1)
Quarter: 2014Q4

REPORT INFORMATION
  Report Type: Spontaneous
  Country: AT (occurrence: None)
  Receive Date: 20141110
  Receipt Date: 20141110
  Transmission Date: 20150529
  Serious: Yes (Hospitalization)
  Sender: FDA-Public Use
  Company Number: 2014HINLIT0990

PATIENT
  Age: 9 Day
  Sex: Male

DRUGS (2)
  1. SILDENAFIL (SILDENAFIL) [Suspect]
     Active Substance: SILDENAFIL
     Indication: PULMONARY HYPERTENSION
     Route: 042
  2. MILRINONE (MILRINONE) [Suspect]
     Active Substance: MILRINONE
     Indication: PULMONARY HYPERTENSION
     Dosage: 0.6 UG/KG/MIN, INTRAVENOUS
     Route: 042

REACTIONS (3)
  - Product use issue [None]
  - Pulmonary haemorrhage [None]
  - Drug interaction [None]
